FAERS Safety Report 21458351 (Version 3)
Quarter: 2022Q4

REPORT INFORMATION
  Report Type: Spontaneous
  Country: CA (occurrence: CA)
  Receive Date: 20221014
  Receipt Date: 20221118
  Transmission Date: 20230113
  Serious: Yes (Other)
  Sender: FDA-Public Use
  Company Number: CA-PFIZER INC-PV202200079649

PATIENT
  Age: 85 Year
  Sex: Female

DRUGS (1)
  1. ZIRABEV [Suspect]
     Active Substance: BEVACIZUMAB-BVZR
     Dosage: UNK
     Dates: start: 2021

REACTIONS (4)
  - Brain oedema [Unknown]
  - Disease recurrence [Unknown]
  - Therapeutic response unexpected [Unknown]
  - Fall [Unknown]

NARRATIVE: CASE EVENT DATE: 20210101
